FAERS Safety Report 5374800-8 (Version None)
Quarter: 2007Q2

REPORT INFORMATION
  Report Type: 
  Country: None (occurrence: None)
  Receive Date: 20070629
  Receipt Date: 20070626
  Transmission Date: 20071010
  Serious: Yes (Hospitalization)
  Sender: FDA-Public Use
  Company Number: A0648414A

PATIENT
  Age: 87 Year
  Sex: Female
  Weight: 50.5 kg

DRUGS (2)
  1. ROSIGLITAZONE [Suspect]
     Dosage: 2MG PER DAY
     Route: 048
     Dates: start: 20061130
  2. DONEPEZIL HCL [Concomitant]
     Dosage: 5MG PER DAY
     Route: 048
     Dates: start: 20040101

REACTIONS (18)
  - AGGRESSION [None]
  - ATRIAL FIBRILLATION [None]
  - CARDIOACTIVE DRUG LEVEL DECREASED [None]
  - CEREBRAL HYPOPERFUSION [None]
  - DEHYDRATION [None]
  - ELECTROCARDIOGRAM POOR R-WAVE PROGRESSION [None]
  - ELECTROCARDIOGRAM ST-T SEGMENT ABNORMAL [None]
  - ENCEPHALOPATHY [None]
  - HYPOTENSION [None]
  - LEFT VENTRICULAR HYPERTROPHY [None]
  - MENTAL STATUS CHANGES [None]
  - MITRAL VALVE INCOMPETENCE [None]
  - PULMONARY HYPERTENSION [None]
  - RENAL FAILURE [None]
  - TACHYCARDIA [None]
  - TREMOR [None]
  - TRICUSPID VALVE INCOMPETENCE [None]
  - URINARY TRACT INFECTION [None]
